FAERS Safety Report 5574631-X (Version None)
Quarter: 2007Q4

REPORT INFORMATION
  Report Type: 
  Country: None (occurrence: None)
  Receive Date: 20071227
  Receipt Date: 20071217
  Transmission Date: 20080405
  Serious: Yes (Hospitalization, Other)
  Sender: FDA-Public Use
  Company Number: DE-ROCHE-533612

PATIENT
  Sex: Female

DRUGS (3)
  1. ROCEPHIN [Suspect]
     Indication: BORRELIA INFECTION
     Route: 042
  2. ROCEPHIN [Suspect]
     Dosage: INTERRUPTED FOR SEVEN YEARS.
     Route: 042
     Dates: start: 19870101
  3. CEFTRIAXON [Suspect]
     Indication: BORRELIA INFECTION
     Route: 065
     Dates: start: 20070101

REACTIONS (2)
  - HAEMOLYTIC ANAEMIA [None]
  - JARISCH-HERXHEIMER REACTION [None]
